FAERS Safety Report 8955838 (Version 2)
Quarter: 2012Q4

REPORT INFORMATION
  Report Type: 
  Country: US (occurrence: US)
  Receive Date: 20121210
  Receipt Date: 20121218
  Transmission Date: 20130627
  Serious: Yes (Hospitalization)
  Sender: FDA-Public Use
  Company Number: US-PFIZER INC-2012286982

PATIENT
  Age: 62 Year
  Sex: Female
  Weight: 43.5 kg

DRUGS (17)
  1. SUNITINIB MALATE [Suspect]
     Indication: GASTRIC CANCER
     Dosage: 25 mg, every 14 days
     Route: 048
     Dates: start: 20110406, end: 20121030
  2. IRINOTECAN HCL [Suspect]
     Indication: GASTRIC CANCER
     Dosage: 100 mg/m2, every 2 weeks
     Route: 042
     Dates: start: 20110406, end: 20121017
  3. FLUOROURACIL [Suspect]
     Indication: GASTRIC CANCER
     Dosage: 2000 mg/m2, IV continued 48hr
     Route: 042
     Dates: start: 20110406, end: 20121017
  4. LEUCOVORIN [Concomitant]
     Indication: GASTRIC CANCER
     Dosage: 400 mg/m2, every 2 weeks
     Route: 042
     Dates: start: 20110406, end: 20121017
  5. LOVENOX [Concomitant]
     Dosage: UNK
  6. IMMODIUM [Concomitant]
     Dosage: UNK
  7. AMLODIPINE [Concomitant]
     Dosage: UNK
  8. LOMOTIL [Concomitant]
     Dosage: UNK
  9. DEXAMETHASONE [Concomitant]
     Dosage: UNK
  10. COLACE [Concomitant]
     Dosage: UNK
  11. LORAZEPAM [Concomitant]
     Dosage: UNK
  12. METOPROLOL [Concomitant]
     Dosage: UNK
  13. PLAVIX [Concomitant]
     Dosage: UNK
  14. ZOFRAN [Concomitant]
     Dosage: UNK
  15. NITRO [Concomitant]
     Dosage: UNK
  16. COMPAZINE [Concomitant]
     Dosage: UNK
  17. VITAMIN B12 [Concomitant]
     Dosage: UNK

REACTIONS (1)
  - Dyspepsia [Recovered/Resolved]
